FAERS Safety Report 9237497 (Version 1)
Quarter: 2013Q2

REPORT INFORMATION
  Report Type: Spontaneous
  Country: CN (occurrence: CN)
  Receive Date: 20130417
  Receipt Date: 20130417
  Transmission Date: 20140414
  Serious: Yes (Other)
  Sender: FDA-Public Use
  Company Number: CN-ABBOTT-13X-035-1077076-00

PATIENT
  Age: 61 Year
  Sex: Male

DRUGS (4)
  1. DEPAKINE CHRONO [Suspect]
     Indication: EPILEPSY
     Dosage: EXTENDED RELEASE
     Route: 048
     Dates: start: 2010
  2. DEPAKINE CHRONO [Interacting]
     Route: 048
     Dates: start: 2011
  3. DEPAKINE CHRONO [Interacting]
     Route: 048
     Dates: start: 2012
  4. DRUGS FOR TREATMENT OF TUBERCULOSIS [Interacting]
     Indication: PULMONARY TUBERCULOSIS
     Route: 048
     Dates: start: 2012

REACTIONS (4)
  - Joint dislocation [Recovered/Resolved]
  - Drug interaction [Recovered/Resolved]
  - Epilepsy [Recovered/Resolved]
  - Somnolence [Not Recovered/Not Resolved]
